FAERS Safety Report 8975842 (Version 1)
Quarter: 2012Q4

REPORT INFORMATION
  Report Type: 
  Country: US (occurrence: US)
  Receive Date: 20121219
  Receipt Date: 20121219
  Transmission Date: 20130627
  Serious: No
  Sender: FDA-Public Use
  Company Number: US-VERTEX PHARMACEUTICALS INC.-2012-026265

PATIENT
  Age: 40 Year
  Sex: Female

DRUGS (4)
  1. VX-950 (TELAPREVIR) [Suspect]
     Indication: HEPATITIS C
     Dosage: 750 mg, tid
     Route: 048
  2. PEGASYS [Suspect]
  3. RIBAVIRIN [Suspect]
     Dosage: 200 mg, UNK
  4. PROCRIT                            /00909301/ [Concomitant]
     Dosage: 10000 ml, UNK

REACTIONS (6)
  - Dizziness [Unknown]
  - Influenza like illness [Unknown]
  - Insomnia [Unknown]
  - Injection site pain [Recovered/Resolved]
  - Rash pruritic [Unknown]
  - Dysgeusia [Unknown]
